FAERS Safety Report 23991866 (Version 2)
Quarter: 2025Q1

REPORT INFORMATION
  Report Type: Report from Study
  Country: US (occurrence: US)
  Receive Date: 20240619
  Receipt Date: 20250123
  Transmission Date: 20250409
  Serious: Yes (Death, Hospitalization, Other)
  Sender: ABBVIE
  Company Number: US-ABBVIE-5807692

PATIENT
  Age: 64 Year
  Sex: Female
  Weight: 66 kg

DRUGS (9)
  1. SYNTHROID [Suspect]
     Active Substance: LEVOTHYROXINE SODIUM
     Indication: Insulin resistance
     Route: 048
  2. SYNTHROID [Suspect]
     Active Substance: LEVOTHYROXINE SODIUM
     Indication: Insulin resistance
     Route: 048
  3. SYNTHROID [Suspect]
     Active Substance: LEVOTHYROXINE SODIUM
     Indication: Insulin resistance
     Dosage: FORM STRENGTH:100 MCG
     Route: 048
     Dates: start: 20221005, end: 20230602
  4. SYNTHROID [Suspect]
     Active Substance: LEVOTHYROXINE SODIUM
     Indication: Insulin resistance
     Dosage: FORM STRENGTH:100 MCG
     Route: 048
     Dates: start: 20230602, end: 20240403
  5. SYNTHROID [Suspect]
     Active Substance: LEVOTHYROXINE SODIUM
     Indication: Insulin resistance
     Route: 048
  6. XANAX [Concomitant]
     Active Substance: ALPRAZOLAM
     Indication: Product used for unknown indication
     Route: 048
     Dates: start: 20220420
  7. ACTIVELLA [Concomitant]
     Active Substance: ESTRADIOL\NORETHINDRONE ACETATE
     Indication: Product used for unknown indication
     Route: 048
     Dates: start: 20211001
  8. LISINOPRIL [Concomitant]
     Active Substance: LISINOPRIL
     Indication: Product used for unknown indication
     Route: 048
     Dates: start: 20220310
  9. PROTONIX [Concomitant]
     Active Substance: PANTOPRAZOLE SODIUM
     Indication: Product used for unknown indication
     Route: 048
     Dates: start: 20220404

REACTIONS (24)
  - Death [Fatal]
  - Intestinal perforation [Unknown]
  - Hysterectomy [Unknown]
  - Poisoning [Unknown]
  - Cholecystectomy [Unknown]
  - Stress [Unknown]
  - Post procedural haemorrhage [Unknown]
  - Alopecia [Unknown]
  - Vitamin B12 deficiency [Recovering/Resolving]
  - Vitamin D deficiency [Unknown]
  - Overweight [Unknown]
  - Hyperlipidaemia [Unknown]
  - Lipids abnormal [Unknown]
  - Haemoglobin decreased [Unknown]
  - Mean cell volume decreased [Unknown]
  - Red cell distribution width increased [Unknown]
  - Thyroglobulin decreased [Unknown]
  - Serum ferritin decreased [Unknown]
  - Blood urea increased [Unknown]
  - Blood urea nitrogen/creatinine ratio increased [Unknown]
  - Blood thyroid stimulating hormone increased [Unknown]
  - Mean cell haemoglobin decreased [Unknown]
  - Mean cell haemoglobin concentration decreased [Unknown]
  - Glycosylated haemoglobin increased [Unknown]

NARRATIVE: CASE EVENT DATE: 20221005
